FAERS Safety Report 5148004-8 (Version None)
Quarter: 2006Q4

REPORT INFORMATION
  Report Type: 
  Country: None (occurrence: None)
  Receive Date: 20060918
  Receipt Date: 20051018
  Transmission Date: 20070319
  Serious: Yes (Hospitalization)
  Sender: FDA-Public Use
  Company Number: US-JNJFOC-20050803032

PATIENT
  Age: 28 Year
  Sex: Female
  Weight: 139.2543 kg

DRUGS (6)
  1. TOPAMAX [Suspect]
     Indication: WEIGHT DECREASED
     Dosage: SEE IMAGE
     Route: 048
     Dates: start: 20050629
  2. TOPROL (METOPROLOL SUCCINATE) UNSPECIFIED [Concomitant]
  3. PROCARDIA [Concomitant]
  4. CYMBALTA (ANTIDEPRESSANTS) UNKNOWN [Concomitant]
  5. HCTZ (HYDROCHLOROTHIAZIDE) UNKNOWN [Concomitant]
  6. BETAXOLOL (BETAXOLOL) UNKNOWN [Concomitant]

REACTIONS (3)
  - DIABETES MELLITUS [None]
  - VISION BLURRED [None]
  - WEIGHT DECREASED [None]
